FAERS Safety Report 13937626 (Version 2)
Quarter: 2017Q3

REPORT INFORMATION
  Report Type: Spontaneous
  Country: GB (occurrence: GB)
  Receive Date: 20170905
  Receipt Date: 20170906
  Transmission Date: 20171127
  Serious: Yes (Death, Other)
  Sender: FDA-Public Use
  Company Number: GB-PFIZER INC-2017381658

PATIENT
  Age: 36 Year
  Sex: Male

DRUGS (3)
  1. DIAZEPAM. [Suspect]
     Active Substance: DIAZEPAM
     Dosage: UNK
  2. PREGABALIN. [Suspect]
     Active Substance: PREGABALIN
  3. CODEINE [Concomitant]
     Active Substance: CODEINE
     Indication: PAIN

REACTIONS (4)
  - Chest injury [Fatal]
  - Drug abuse [Unknown]
  - Head injury [Fatal]
  - Road traffic accident [Fatal]
